FAERS Safety Report 14853516 (Version 1)
Quarter: 2018Q2

REPORT INFORMATION
  Report Type: Spontaneous
  Country: US (occurrence: US)
  Receive Date: 20180420
  Receipt Date: 20180420
  Transmission Date: 20180711
  Serious: Yes (Other)
  Sender: FDA-Public Use
  Company Number: None

PATIENT
  Age: 65 Year
  Sex: Female
  Weight: 53.25 kg

DRUGS (9)
  1. GABAPENTIN 300MG CAP [Concomitant]
  2. CHOLECALCIFEROL (VIT D3) 1,000UNIT TAB [Concomitant]
  3. BISACODYL 5MG EC TAB [Concomitant]
  4. AZATHIOPRINE. [Suspect]
     Active Substance: AZATHIOPRINE
     Indication: RHEUMATOID ARTHRITIS
     Route: 048
     Dates: start: 20180221, end: 20180321
  5. POLYETHYLENE GLYCOL 3350 ORAL PWDR [Concomitant]
  6. CYANOCOBALAMIN 1000MCG TAB [Concomitant]
  7. DOCUSATE NA 100MG CAP [Concomitant]
  8. MAGNESIUM OXIDE 400MG TAB [Concomitant]
  9. HYDROCODONE 5MG/APAP 325MG TAB [Concomitant]

REACTIONS (2)
  - Neutropenia [None]
  - Leukopenia [None]

NARRATIVE: CASE EVENT DATE: 20180321
